FAERS Safety Report 16655644 (Version 1)
Quarter: 2019Q3

REPORT INFORMATION
  Report Type: Report from Study
  Country: IT (occurrence: IT)
  Receive Date: 20190801
  Receipt Date: 20190801
  Transmission Date: 20191004
  Serious: Yes (Hospitalization)
  Sender: FDA-Public Use
  Company Number: IT-ORION CORPORATION ORION PHARMA-19_00006665

PATIENT
  Age: 75 Year
  Sex: Male

DRUGS (13)
  1. BICALUTAMIDE. [Concomitant]
     Active Substance: BICALUTAMIDE
     Route: 065
  2. UROREC [Concomitant]
     Active Substance: SILODOSIN
     Route: 065
  3. NEUPRO [Concomitant]
     Active Substance: ROTIGOTINE
     Route: 065
  4. FERRO-GRAD [Concomitant]
     Active Substance: FERROUS SULFATE
     Route: 065
  5. TOUJEO [Concomitant]
     Active Substance: INSULIN GLARGINE
     Route: 065
  6. ZIRTEC [Concomitant]
     Active Substance: CETIRIZINE HYDROCHLORIDE
     Route: 065
  7. EUCREAS [Concomitant]
     Active Substance: METFORMIN HYDROCHLORIDE\VILDAGLIPTIN
     Dosage: 50/850 MG
     Route: 065
  8. STALEVO [Suspect]
     Active Substance: CARBIDOPA\ENTACAPONE\LEVODOPA
     Indication: PARKINSON^S DISEASE
     Dosage: LEVODOPA 125MG-CARBIDOPA 31.25MG-ENTACAPONE 200MG
     Route: 048
  9. XADAGO [Interacting]
     Active Substance: SAFINAMIDE MESYLATE
     Indication: PARKINSON^S DISEASE
     Route: 048
  10. LEUPRORELIN ACETATE [Concomitant]
     Active Substance: LEUPROLIDE ACETATE
     Route: 065
  11. LUCEN [Concomitant]
     Active Substance: ESOMEPRAZOLE
     Route: 065
  12. INEGY [Interacting]
     Active Substance: EZETIMIBE\SIMVASTATIN
     Indication: DYSLIPIDAEMIA
     Dosage: 10/10 MG
     Route: 048
  13. DIAMICRON [Concomitant]
     Active Substance: GLICLAZIDE
     Dosage: STRENGTH: 60 MG
     Route: 065

REACTIONS (3)
  - Acute kidney injury [Recovering/Resolving]
  - Drug interaction [Recovering/Resolving]
  - Rhabdomyolysis [Recovering/Resolving]

NARRATIVE: CASE EVENT DATE: 20190311
